FAERS Safety Report 9418722 (Version 1)
Quarter: 2013Q3

REPORT INFORMATION
  Report Type: Report from Study
  Country: JP (occurrence: JP)
  Receive Date: 20130725
  Receipt Date: 20130725
  Transmission Date: 20140515
  Serious: Yes (Hospitalization)
  Sender: FDA-Public Use
  Company Number: JP-CELGENEUS-087-50794-12110510

PATIENT
  Age: 78 Year
  Sex: Male
  Weight: 44 kg

DRUGS (27)
  1. VIDAZA [Suspect]
     Indication: MYELODYSPLASTIC SYNDROME
     Dosage: 75 MILLIGRAM
     Route: 041
     Dates: start: 20120524, end: 20120601
  2. VIDAZA [Suspect]
     Dosage: 75 MILLIGRAM
     Route: 041
     Dates: start: 20120628, end: 20120706
  3. VIDAZA [Suspect]
     Dosage: 80 MILLIGRAM
     Route: 041
     Dates: start: 20120730, end: 20120807
  4. VIDAZA [Suspect]
     Dosage: 80 MILLIGRAM
     Route: 041
     Dates: start: 20120904, end: 20120912
  5. VIDAZA [Suspect]
     Dosage: 80 MILLIGRAM
     Route: 041
     Dates: start: 20121011, end: 20121012
  6. VIDAZA [Suspect]
     Dosage: 80 MILLIGRAM
     Route: 041
     Dates: start: 20121029, end: 20121102
  7. VIDAZA [Suspect]
     Dosage: 80 MILLIGRAM
     Route: 041
     Dates: start: 20121129, end: 20121207
  8. HARNAL D [Concomitant]
     Indication: PRODUCT USED FOR UNKNOWN INDICATION
     Route: 065
  9. HERBESSER [Concomitant]
     Indication: PRODUCT USED FOR UNKNOWN INDICATION
     Route: 065
  10. BROTIZOLAM [Concomitant]
     Indication: PRODUCT USED FOR UNKNOWN INDICATION
     Route: 065
  11. KYTRIL [Concomitant]
     Indication: PRODUCT USED FOR UNKNOWN INDICATION
     Route: 065
     Dates: start: 20120524, end: 20120525
  12. KYTRIL [Concomitant]
     Route: 065
     Dates: start: 20120528, end: 20120601
  13. KYTRIL [Concomitant]
     Route: 065
     Dates: start: 20120628, end: 20120629
  14. KYTRIL [Concomitant]
     Route: 065
     Dates: start: 20120702, end: 20120706
  15. MAGMITT [Concomitant]
     Indication: PRODUCT USED FOR UNKNOWN INDICATION
     Route: 065
     Dates: start: 20120525
  16. FLUCONAZOLE [Concomitant]
     Indication: PRODUCT USED FOR UNKNOWN INDICATION
     Route: 065
     Dates: start: 20120706
  17. MAXIPIME [Concomitant]
     Indication: PRODUCT USED FOR UNKNOWN INDICATION
     Route: 065
     Dates: start: 20120714, end: 20120724
  18. MAXIPIME [Concomitant]
     Route: 065
     Dates: start: 20120918, end: 20120926
  19. CRAVIT [Concomitant]
     Indication: PRODUCT USED FOR UNKNOWN INDICATION
     Route: 065
     Dates: start: 20120823
  20. PREDONINE [Concomitant]
     Indication: PRODUCT USED FOR UNKNOWN INDICATION
     Route: 065
     Dates: start: 20120928, end: 20121004
  21. PREDONINE [Concomitant]
     Route: 065
     Dates: start: 20121005, end: 20121016
  22. PREDONINE [Concomitant]
     Route: 065
     Dates: start: 20121017, end: 20121101
  23. PREDONINE [Concomitant]
     Route: 065
     Dates: start: 20121102, end: 20121115
  24. PREDONINE [Concomitant]
     Route: 065
     Dates: start: 20121116, end: 20121213
  25. PREDONINE [Concomitant]
     Route: 065
     Dates: start: 20121214, end: 20121226
  26. GASTER [Concomitant]
     Indication: PRODUCT USED FOR UNKNOWN INDICATION
     Route: 065
     Dates: start: 20120928, end: 20121226
  27. MEROPEN [Concomitant]
     Indication: PRODUCT USED FOR UNKNOWN INDICATION
     Route: 065
     Dates: start: 20120927, end: 20121004

REACTIONS (4)
  - Parophthalmia [Recovered/Resolved]
  - Pneumonia [Recovered/Resolved]
  - Pneumonia [Recovered/Resolved]
  - Pneumonia [Recovered/Resolved]
